FAERS Safety Report 4764047-8 (Version None)
Quarter: 2005Q3

REPORT INFORMATION
  Report Type: 
  Country: None (occurrence: None)
  Receive Date: 20050908
  Receipt Date: 20050517
  Transmission Date: 20060218
  Serious: Yes (Hospitalization, Other)
  Sender: FDA-Public Use
  Company Number: US-MERCK-0505USA02134

PATIENT
  Age: 71 Year
  Sex: Male
  Weight: 114 kg

DRUGS (21)
  1. VIOXX [Suspect]
     Indication: OSTEOARTHRITIS
     Route: 048
     Dates: start: 20020101, end: 20040601
  2. VIOXX [Suspect]
     Indication: ARTHRALGIA
     Route: 048
     Dates: start: 20020101, end: 20040601
  3. FLEXERIL [Concomitant]
     Indication: ARTHRALGIA
     Route: 065
  4. NASACORT [Concomitant]
     Indication: NASAL DISORDER
     Route: 065
  5. AFRIN [Concomitant]
     Indication: NASAL DISORDER
     Route: 065
  6. GLUCOPHAGE [Concomitant]
     Indication: DIABETES MELLITUS
     Route: 065
  7. METOPROLOL [Concomitant]
     Indication: CARDIAC DISORDER
     Route: 065
  8. PRAVASTATIN SODIUM [Concomitant]
     Indication: BLOOD CHOLESTEROL INCREASED
     Route: 065
  9. ECOTRIN [Concomitant]
     Indication: CARDIAC DISORDER
     Route: 065
  10. LASIX [Concomitant]
     Indication: FLUID RETENTION
     Route: 065
  11. LASIX [Concomitant]
     Indication: HYPERTENSION
     Route: 065
  12. FOLTX [Concomitant]
     Indication: VITAMIN SUPPLEMENTATION
     Route: 065
  13. DIOVAN [Concomitant]
     Indication: HYPERTENSION
     Route: 065
  14. DIOVAN [Concomitant]
     Indication: CARDIAC FAILURE CONGESTIVE
     Route: 065
  15. TOPROL-XL [Concomitant]
     Indication: HYPERTENSION
     Route: 065
  16. LOPRESS [Concomitant]
     Indication: HYPERTENSION
     Route: 065
  17. LOPRESSOR [Concomitant]
     Route: 065
  18. PLAVIX [Concomitant]
     Route: 065
  19. NITROGLYCERIN [Concomitant]
     Route: 065
  20. ZOCOR [Concomitant]
     Route: 065
  21. ACIPHEX [Concomitant]
     Route: 065

REACTIONS (11)
  - ANGINA UNSTABLE [None]
  - ATHEROSCLEROSIS [None]
  - CARDIAC FAILURE CONGESTIVE [None]
  - CHRONIC OBSTRUCTIVE PULMONARY DISEASE [None]
  - CORONARY ARTERY DISEASE [None]
  - DIABETES MELLITUS [None]
  - DIZZINESS [None]
  - MYOCARDIAL INFARCTION [None]
  - OBESITY [None]
  - SINUSITIS [None]
  - SLEEP APNOEA SYNDROME [None]
